FAERS Safety Report 9196486 (Version 1)
Quarter: 2013Q1

REPORT INFORMATION
  Report Type: Spontaneous
  Country: US (occurrence: US)
  Receive Date: 20130328
  Receipt Date: 20130328
  Transmission Date: 20140127
  Serious: Yes (Hospitalization, Other)
  Sender: FDA-Public Use
  Company Number: US-PFIZER INC-2013098462

PATIENT
  Age: 84 Year
  Sex: Female
  Weight: 91 kg

DRUGS (4)
  1. CARDURA [Suspect]
     Indication: HYPERTENSION
     Dosage: 2 MG, 1X/DAY
     Route: 048
  2. CARDIZEM [Suspect]
     Dosage: UNK
  3. ATROVENT [Concomitant]
     Dosage: UNK
  4. WARFARIN [Concomitant]
     Indication: ANTICOAGULANT THERAPY
     Dosage: UNK

REACTIONS (2)
  - Cardiac disorder [Unknown]
  - Malaise [Recovered/Resolved]
